FAERS Safety Report 13040771 (Version 7)
Quarter: 2017Q1

REPORT INFORMATION
  Report Type: Report from Study
  Country: KR (occurrence: KR)
  Receive Date: 20161219
  Receipt Date: 20170306
  Transmission Date: 20170428
  Serious: Yes (Hospitalization)
  Sender: FDA-Public Use
  Company Number: KR-ROCHE-1865311

PATIENT
  Age: 61 Year
  Sex: Male
  Weight: 72.5 kg

DRUGS (56)
  1. NAXEN-F [Concomitant]
     Indication: MUSCULOSKELETAL CHEST PAIN
     Route: 065
     Dates: start: 201607, end: 20161205
  2. NAXEN-F [Concomitant]
     Indication: TUMOUR ASSOCIATED FEVER
     Route: 065
     Dates: start: 20161214, end: 20170120
  3. NAXEN-F [Concomitant]
     Route: 065
     Dates: start: 20170201
  4. PHENIRAMIN [Concomitant]
     Route: 065
     Dates: start: 20161206, end: 20161207
  5. PHENIRAMIN [Concomitant]
     Route: 065
     Dates: start: 20161223, end: 20161223
  6. DENOGAN [Concomitant]
     Active Substance: PROPACETAMOL HYDROCHLORIDE
     Route: 065
     Dates: start: 20161222, end: 20170201
  7. MOBINUL [Concomitant]
     Indication: PREMEDICATION
     Route: 065
     Dates: start: 20170125, end: 20170125
  8. PACKED RBC [Concomitant]
     Route: 065
     Dates: start: 20161223, end: 20161223
  9. TRIZELE [Concomitant]
     Active Substance: METRONIDAZOLE
     Route: 065
     Dates: start: 20161209, end: 20161210
  10. CURAN [Concomitant]
     Active Substance: RANITIDINE HYDROCHLORIDE
     Route: 065
     Dates: start: 20170201
  11. FRESOFOL [Concomitant]
     Route: 065
     Dates: start: 20170125, end: 20170125
  12. TIVARE [Concomitant]
     Route: 065
     Dates: start: 20170125, end: 20170125
  13. NASEA [Concomitant]
     Active Substance: RAMOSETRON HYDROCHLORIDE
     Indication: PROPHYLAXIS
     Route: 065
     Dates: start: 20170125, end: 20170125
  14. BRIDION [Concomitant]
     Active Substance: SUGAMMADEX
     Route: 065
     Dates: start: 20170125, end: 20170125
  15. ZINCTRACE [Concomitant]
     Route: 065
     Dates: start: 20170125, end: 20170127
  16. ATEZOLIZUMAB [Suspect]
     Active Substance: ATEZOLIZUMAB
     Indication: NON-SMALL CELL LUNG CANCER
     Dosage: DATE OF MOST RECENT DOSE PRIOR TO THE EVENT ONSET (MELENA): 06/DEC/2016. ?DATE OF MOST RECENT DOSE P
     Route: 042
     Dates: start: 20161026
  17. STOGAR [Concomitant]
     Active Substance: LAFUTIDINE
     Indication: PROPHYLAXIS
     Route: 065
     Dates: start: 20160912, end: 20161205
  18. TYLENOL [Concomitant]
     Active Substance: ACETAMINOPHEN
     Indication: TUMOUR ASSOCIATED FEVER
     Route: 065
     Dates: start: 20161206, end: 20161213
  19. NEXIUM [Concomitant]
     Active Substance: ESOMEPRAZOLE MAGNESIUM
     Indication: PROPHYLAXIS
     Dosage: MAGNESIUM TRIHYDRATE
     Route: 065
     Dates: start: 20161206
  20. CYCIN [Concomitant]
     Route: 065
     Dates: start: 20170122, end: 20170202
  21. NAXEN-F [Concomitant]
     Route: 065
     Dates: start: 20170124, end: 20170125
  22. ALMAGEL (ALMAGATE) [Concomitant]
     Indication: PROPHYLAXIS
     Route: 065
     Dates: start: 20161031, end: 20161221
  23. CRAVIT [Concomitant]
     Active Substance: LEVOFLOXACIN
     Route: 065
     Dates: start: 20161208, end: 20161209
  24. CRAVIT [Concomitant]
     Active Substance: LEVOFLOXACIN
     Route: 065
     Dates: start: 20161212, end: 20161212
  25. MYPOL (ACETAMINOPHEN/CODEINE PHOSPHATE/IBUPROFEN) [Concomitant]
     Indication: ABDOMINAL PAIN
     Route: 065
     Dates: start: 20170201, end: 20170201
  26. CURAN [Concomitant]
     Active Substance: RANITIDINE HYDROCHLORIDE
     Indication: PROPHYLAXIS
     Route: 065
     Dates: start: 20170122, end: 20170131
  27. ADENOSINE TRIPHOSPHATE DISODIUM [Concomitant]
     Active Substance: ADENOSINE TRIPHOSPHATE DISODIUM
     Indication: NUTRITIONAL SUPPLEMENTATION
     Dosage: ENG(ADENOSINE TRIPHOSPHATE DISODIUM TRIHYDRATE)
     Route: 065
     Dates: start: 20170121, end: 20170121
  28. HYSPAN [Concomitant]
     Indication: ABDOMINAL PAIN
     Route: 065
     Dates: start: 20170121, end: 20170125
  29. PLOKON [Concomitant]
     Route: 065
     Dates: start: 20170123, end: 20170123
  30. PACKED RBC [Concomitant]
     Indication: ANAEMIA
     Route: 065
     Dates: start: 20161116, end: 20161116
  31. CEFTRIAXONE SODIUM. [Concomitant]
     Active Substance: CEFTRIAXONE SODIUM
     Route: 065
     Dates: start: 20161208, end: 20161212
  32. CITOPCIN [Concomitant]
     Route: 065
     Dates: start: 20170121, end: 20170121
  33. LASIX [Concomitant]
     Active Substance: FUROSEMIDE
     Route: 065
     Dates: start: 20170127, end: 20170128
  34. ESMERON [Concomitant]
     Active Substance: ROCURONIUM BROMIDE
     Route: 065
     Dates: start: 20170125, end: 20170125
  35. NASERON [Concomitant]
     Indication: PROPHYLAXIS
     Route: 065
     Dates: start: 20170125, end: 20170126
  36. UMCKAMIN [Concomitant]
     Indication: COUGH
     Route: 065
     Dates: start: 20161207, end: 20161212
  37. DENOGAN [Concomitant]
     Active Substance: PROPACETAMOL HYDROCHLORIDE
     Indication: TUMOUR ASSOCIATED FEVER
     Route: 065
     Dates: start: 20161209, end: 20161212
  38. NORZYME [Concomitant]
     Indication: PROPHYLAXIS
     Route: 065
     Dates: start: 20170201, end: 20170202
  39. MUTERAN [Concomitant]
     Active Substance: ACETYLCYSTEINE
     Indication: PRODUCTIVE COUGH
     Route: 065
     Dates: start: 20170125, end: 20170129
  40. TRIZELE [Concomitant]
     Active Substance: METRONIDAZOLE
     Route: 065
     Dates: start: 20170121, end: 20170202
  41. FRESH FROZEN PLASMA [Concomitant]
     Active Substance: HUMAN PLASMA
     Indication: PROPHYLAXIS
     Route: 065
     Dates: start: 20170125, end: 20170125
  42. PRIVITUSS [Concomitant]
     Indication: COUGH
     Route: 065
     Dates: start: 20161207, end: 20161212
  43. NORZYME [Concomitant]
     Indication: DYSPEPSIA
     Route: 065
     Dates: start: 20161211, end: 20161212
  44. KCL [Concomitant]
     Active Substance: POTASSIUM CHLORIDE
     Indication: HYPOKALAEMIA
     Route: 065
     Dates: start: 20170126, end: 20170129
  45. MACPERAN [Concomitant]
     Active Substance: METOCLOPRAMIDE HYDROCHLORIDE
     Indication: VOMITING
     Route: 065
     Dates: start: 20170121, end: 20170121
  46. MIDAZOLAM [Concomitant]
     Active Substance: MIDAZOLAM HYDROCHLORIDE
     Indication: PREMEDICATION
     Route: 065
     Dates: start: 20170125, end: 20170125
  47. ALBUMIN [Concomitant]
     Active Substance: ALBUMIN HUMAN
     Indication: HYPOALBUMINAEMIA
     Route: 065
     Dates: start: 20170123, end: 20170129
  48. STOGAR [Concomitant]
     Active Substance: LAFUTIDINE
     Route: 065
     Dates: start: 20161207, end: 20161212
  49. PACKED RBC [Concomitant]
     Route: 065
     Dates: start: 20161206, end: 20161207
  50. PACKED RBC [Concomitant]
     Route: 065
     Dates: start: 20170118, end: 20170125
  51. PHENIRAMIN [Concomitant]
     Indication: PROPHYLAXIS
     Route: 065
     Dates: start: 20161116, end: 20161116
  52. LEVOFLOXACIN HEMIHYDRATE [Concomitant]
     Active Substance: LEVOFLOXACIN
     Dosage: LEVOKACIN
     Route: 065
     Dates: start: 20161213, end: 20161221
  53. INFLUENZA VACCINE [Concomitant]
     Active Substance: INFLUENZA VIRUS VACCINE
     Route: 065
     Dates: start: 20161223, end: 20161223
  54. KERAL [Concomitant]
     Indication: PROCEDURAL PAIN
     Route: 065
     Dates: start: 20170125, end: 20170131
  55. FENTANYL. [Concomitant]
     Active Substance: FENTANYL
     Dosage: (FENTANYL CITRATE)
     Route: 065
     Dates: start: 20170125, end: 20170128
  56. DENOGAN [Concomitant]
     Active Substance: PROPACETAMOL HYDROCHLORIDE
     Indication: PYREXIA
     Route: 065
     Dates: start: 20170122, end: 20170201

REACTIONS (2)
  - Melaena [Recovered/Resolved]
  - Small intestinal obstruction [Recovered/Resolved]

NARRATIVE: CASE EVENT DATE: 20161126
